FAERS Safety Report 7478039-1 (Version None)
Quarter: 2011Q2

REPORT INFORMATION
  Report Type: 
  Country: None (occurrence: None)
  Receive Date: 20110511
  Receipt Date: 20110511
  Transmission Date: 20111010
  Serious: Yes (Life-Threatening)
  Sender: FDA-Public Use
  Company Number: None

PATIENT
  Age: 61 Year
  Sex: Female
  Weight: 70 kg

DRUGS (2)
  1. CHLORZOXAZONE [Suspect]
     Indication: ENDODONTIC PROCEDURE
  2. CHLORZOXAZONE [Suspect]
     Indication: TRISMUS

REACTIONS (4)
  - LIVER TRANSPLANT [None]
  - HEPATOTOXICITY [None]
  - HEPATIC ENZYME INCREASED [None]
  - NAUSEA [None]
